FAERS Safety Report 25108936 (Version 1)
Quarter: 2025Q1

REPORT INFORMATION
  Report Type: Spontaneous
  Country: GB (occurrence: GB)
  Receive Date: 20250322
  Receipt Date: 20250322
  Transmission Date: 20250409
  Serious: Yes (Other)
  Sender: TORRENT PHARMA INC.
  Company Number: None

PATIENT
  Weight: 61 kg

DRUGS (2)
  1. MONTELUKAST [Suspect]
     Active Substance: MONTELUKAST
     Indication: Asthma
     Dosage: 10MG ONCE AT NIGHT
     Route: 065
     Dates: start: 20210915, end: 20250204
  2. BECLOMETHASONE\FORMOTEROL [Concomitant]
     Active Substance: BECLOMETHASONE\FORMOTEROL
     Indication: Asthma
     Route: 065
     Dates: start: 202110

REACTIONS (7)
  - Nightmare [Recovering/Resolving]
  - Depression [Recovering/Resolving]
  - Mood swings [Not Recovered/Not Resolved]
  - Disturbance in attention [Recovering/Resolving]
  - Speech disorder developmental [Recovering/Resolving]
  - Change of bowel habit [Recovering/Resolving]
  - Emotional distress [Recovering/Resolving]
